FAERS Safety Report 21550163 (Version 2)
Quarter: 2023Q2

REPORT INFORMATION
  Report Type: Spontaneous
  Country: CN (occurrence: CN)
  Receive Date: 20221103
  Receipt Date: 20230609
  Transmission Date: 20230721
  Serious: Yes (Hospitalization)
  Sender: FDA-Public Use
  Company Number: CN-PFIZER INC-PV202200094999

PATIENT
  Age: 9 Year
  Sex: Male
  Weight: 44 kg

DRUGS (3)
  1. EPIRUBICIN [Suspect]
     Active Substance: EPIRUBICIN
     Indication: Acute lymphocytic leukaemia
     Dosage: 40.8 MG, 1X/DAY
     Route: 041
     Dates: start: 20220918, end: 20220918
  2. CYTARABINE [Suspect]
     Active Substance: CYTARABINE
     Indication: Acute lymphocytic leukaemia
     Dosage: 0.035 G, 1X/DAY
     Route: 037
     Dates: start: 20220919, end: 20220919
  3. VINCRISTINE SULFATE [Suspect]
     Active Substance: VINCRISTINE SULFATE
     Indication: Acute lymphocytic leukaemia
     Dosage: 2 MG, 1X/DAY
     Route: 041
     Dates: start: 20220918, end: 20220919

REACTIONS (1)
  - Granulocyte count decreased [Recovering/Resolving]

NARRATIVE: CASE EVENT DATE: 20220929
